FAERS Safety Report 19369633 (Version 2)
Quarter: 2021Q2

REPORT INFORMATION
  Report Type: Spontaneous
  Country: TR (occurrence: TR)
  Receive Date: 20210603
  Receipt Date: 20210608
  Transmission Date: 20210717
  Serious: Yes (Death, Hospitalization)
  Sender: FDA-Public Use
  Company Number: TR-ELI_LILLY_AND_COMPANY-TR202105011978

PATIENT
  Age: 28 Year
  Sex: Male

DRUGS (3)
  1. CYRAMZA [Suspect]
     Active Substance: RAMUCIRUMAB
     Indication: METASTATIC GASTRIC CANCER
     Dosage: 8 MG/KG, CYCLICAL (ON D1 AND 15 ONCE IN EVERY 28 DAYS)
     Route: 042
     Dates: start: 20171213, end: 20180522
  2. PACLITAXEL. [Suspect]
     Active Substance: PACLITAXEL
     Indication: METASTATIC GASTRIC CANCER
     Dosage: 80 MG/M2, CYCLICAL (ON D1, 8, 15 ONCE IN EVERY 28 DAYS)
     Route: 042
     Dates: start: 20171213, end: 20180522
  3. FOLFIRI [Suspect]
     Active Substance: FLUOROURACIL\IRINOTECAN\LEUCOVORIN
     Indication: METASTATIC GASTRIC CANCER
     Dosage: UNK, UNKNOWN
     Route: 065

REACTIONS (9)
  - Malignant neoplasm progression [Fatal]
  - Decreased appetite [Unknown]
  - Faeces pale [Unknown]
  - Jaundice [Recovering/Resolving]
  - Ascites [Unknown]
  - Fatigue [Unknown]
  - Nausea [Unknown]
  - Biliary dilatation [Unknown]
  - Ileus [Unknown]

NARRATIVE: CASE EVENT DATE: 20180522
